FAERS Safety Report 17921900 (Version 1)
Quarter: 2020Q2

REPORT INFORMATION
  Report Type: Spontaneous
  Country: US (occurrence: US)
  Receive Date: 20200619
  Receipt Date: 20200619
  Transmission Date: 20200714
  Serious: Yes (Disabling, Other)
  Sender: FDA-Public Use
  Company Number: None

PATIENT
  Age: 61 Year
  Sex: Male
  Weight: 86.85 kg

DRUGS (12)
  1. ENTERIC ASPIIRIN 81 MG [Concomitant]
  2. CPAP [Concomitant]
     Active Substance: DEVICE
  3. BRILINTA [Suspect]
     Active Substance: TICAGRELOR
     Indication: ANTIPLATELET THERAPY
     Dosage: ?          QUANTITY:1 TABLET(S);?
     Route: 048
     Dates: start: 20200413, end: 20200605
  4. COREG [Concomitant]
     Active Substance: CARVEDILOL
  5. ZETIA 10 MG [Concomitant]
  6. EFFIENT [Concomitant]
     Active Substance: PRASUGREL HYDROCHLORIDE
  7. B12 COMPLEX LIQUID DROPS [Concomitant]
  8. PREVACID 30 MG [Concomitant]
  9. XALATAN DROPS [Concomitant]
  10. VITAMIN D3 [Concomitant]
     Active Substance: CHOLECALCIFEROL
  11. ENTRESTO 24/26MG [Concomitant]
  12. CENTRUM MULTIVITE [Concomitant]

REACTIONS (2)
  - Sleep apnoea syndrome [None]
  - Dyspnoea [None]

NARRATIVE: CASE EVENT DATE: 20200413
